FAERS Safety Report 8766763 (Version 3)
Quarter: 2012Q4

REPORT INFORMATION
  Report Type: 
  Country: US (occurrence: US)
  Receive Date: 20120904
  Receipt Date: 20121115
  Transmission Date: 20130627
  Serious: Yes (Hospitalization)
  Sender: FDA-Public Use
  Company Number: US-BAYER-2012-089007

PATIENT
  Age: 18 Year
  Sex: Female
  Weight: 68.03 kg

DRUGS (12)
  1. YASMIN [Suspect]
     Indication: ACNE
     Dosage: UNK
     Dates: start: 200502, end: 20060119
  2. YASMIN [Suspect]
     Indication: PREMENSTRUAL SYNDROME
  3. SINGULAIR [Concomitant]
     Indication: ALLERGIC RHINITIS
     Dosage: 10 mg, UNK
     Route: 048
  4. HYOSCYAMINE [Concomitant]
     Indication: ABDOMINAL CRAMPS
     Dosage: 0.125 mg, UNK
  5. METAMUCIL [Concomitant]
     Dosage: UNK UNK, PRN
  6. MORPHINE [Concomitant]
     Dosage: 4 mg, UNK
     Route: 042
  7. DILAUDID [Concomitant]
     Dosage: 2 mg, UNK
     Route: 042
  8. LEVSIN [Concomitant]
     Indication: ABDOMINAL PAIN
  9. DEMEROL [Concomitant]
     Dosage: 25 mg, UNK
     Route: 042
  10. PHENERGAN [Concomitant]
     Dosage: 25 mg, UNK
     Route: 042
  11. LORTAB [Concomitant]
     Indication: PAIN
  12. ACCUTANE [Concomitant]
     Indication: ACNE

REACTIONS (7)
  - Pelvic venous thrombosis [Recovering/Resolving]
  - Pain [Recovering/Resolving]
  - Injury [Recovering/Resolving]
  - Emotional distress [None]
  - General physical health deterioration [None]
  - Anxiety [None]
  - Pain [None]
